FAERS Safety Report 6759497-4 (Version None)
Quarter: 2010Q2

REPORT INFORMATION
  Report Type: 
  Country: None (occurrence: None)
  Receive Date: 20100603
  Receipt Date: 20100519
  Transmission Date: 20101027
  Serious: Yes (Other)
  Sender: FDA-Public Use
  Company Number: 010481

PATIENT
  Sex: Female

DRUGS (4)
  1. VIMPAT [Suspect]
     Indication: EPILEPSY
     Dosage: (IN UPTITRATING PHASE), (100 MG BID)
     Dates: start: 20100210, end: 20100218
  2. VIMPAT [Suspect]
     Indication: EPILEPSY
     Dosage: (IN UPTITRATING PHASE), (100 MG BID)
     Dates: start: 20100201
  3. LAMICTAL [Concomitant]
  4. RISPERDAL [Concomitant]

REACTIONS (1)
  - ATRIOVENTRICULAR BLOCK COMPLETE [None]
